FAERS Safety Report 7520151-2 (Version None)
Quarter: 2011Q2

REPORT INFORMATION
  Report Type: 
  Country: None (occurrence: None)
  Receive Date: 20110602
  Receipt Date: 20110523
  Transmission Date: 20111010
  Serious: Yes (Death, Hospitalization, Other)
  Sender: FDA-Public Use
  Company Number: US-CELGENEUS-163-21880-11052904

PATIENT
  Age: 67 Year
  Sex: Male

DRUGS (7)
  1. REVLIMID [Suspect]
     Indication: MULTIPLE MYELOMA
     Dosage: 10 MILLIGRAM
     Route: 048
     Dates: start: 20100101, end: 20101101
  2. ACYCLOVIR [Concomitant]
     Route: 065
  3. GABAPENTIN [Concomitant]
     Route: 065
  4. COMPAZINE [Concomitant]
     Route: 065
  5. OMEPRAZOLE [Concomitant]
     Route: 065
  6. DEXAMETHASONE [Concomitant]
     Route: 065
  7. CIPROFLOXACIN [Concomitant]
     Route: 065

REACTIONS (3)
  - DEATH [None]
  - PNEUMONIA [None]
  - PLATELET COUNT DECREASED [None]
